FAERS Safety Report 23896238 (Version 1)
Quarter: 2024Q2

REPORT INFORMATION
  Report Type: Spontaneous
  Country: US (occurrence: None)
  Receive Date: 20240523
  Receipt Date: 20240523
  Transmission Date: 20240715
  Serious: No
  Sender: FDA-Public Use
  Company Number: None

PATIENT
  Age: 61 Year
  Sex: Male

DRUGS (1)
  1. SUTENT [Suspect]
     Active Substance: SUNITINIB MALATE
     Indication: Gastrointestinal carcinoma
     Dosage: FREQUENCY : DAILY;?
     Route: 048
     Dates: start: 20240515

REACTIONS (5)
  - Diarrhoea [None]
  - Chromaturia [None]
  - Pollakiuria [None]
  - Headache [None]
  - Dry throat [None]

NARRATIVE: CASE EVENT DATE: 20240523
